FAERS Safety Report 8459916-1 (Version None)
Quarter: 2012Q2

REPORT INFORMATION
  Report Type: 
  Country: None (occurrence: None)
  Receive Date: 20120622
  Receipt Date: 20120619
  Transmission Date: 20120825
  Serious: Yes (Life-Threatening, Hospitalization, Other)
  Sender: FDA-Public Use
  Company Number: PHFR2012GB003303

PATIENT
  Sex: Male

DRUGS (7)
  1. VALPROATE SODIUM [Concomitant]
     Indication: EPILEPSY
     Dosage: 1500 MG, DAILY
     Route: 048
  2. LEVOTHYROXINE [Concomitant]
     Indication: HYPOTHYROIDISM
     Dosage: 150 UG, DAILY
     Route: 048
  3. CLOZARIL [Suspect]
     Indication: SCHIZOPHRENIA
     Route: 048
     Dates: start: 20031020
  4. NICOTINE [Concomitant]
     Indication: TOBACCO USER
     Dosage: 14 MG, DAILY
     Route: 061
  5. CLOZARIL [Suspect]
     Dosage: 650 MG, (100 MG MANE AND 550 MG NOCTE)
     Route: 048
  6. ENSURE PLUS [Concomitant]
     Dosage: 220 ML, UNK
     Route: 048
  7. ENSURE PLUS [Concomitant]
     Dosage: 220 ML, DAILY
     Route: 048

REACTIONS (18)
  - INTESTINAL PERFORATION [None]
  - ABDOMINAL PAIN [None]
  - FAECALOMA [None]
  - ILEUS PARALYTIC [None]
  - NEUTROPHIL COUNT INCREASED [None]
  - BLOOD PRESSURE DECREASED [None]
  - CONSTIPATION [None]
  - ABDOMINAL DISTENSION [None]
  - LOCALISED INTRAABDOMINAL FLUID COLLECTION [None]
  - VOMITING [None]
  - SMALL INTESTINAL OBSTRUCTION [None]
  - MALAISE [None]
  - C-REACTIVE PROTEIN INCREASED [None]
  - HEART RATE INCREASED [None]
  - WHITE BLOOD CELL COUNT INCREASED [None]
  - PALLOR [None]
  - SCAN ABDOMEN ABNORMAL [None]
  - HAEMOGLOBIN DECREASED [None]
